FAERS Safety Report 16780997 (Version 1)
Quarter: 2019Q4

REPORT INFORMATION
  Report Type: Spontaneous
  Country: US (occurrence: US)
  Receive Date: 20190906
  Receipt Date: 20190906
  Transmission Date: 20200122
  Serious: Yes (Other)
  Sender: FDA-Public Use
  Company Number: None

PATIENT
  Age: 64 Year
  Sex: Female
  Weight: 81 kg

DRUGS (11)
  1. SIMVASTATIN. [Concomitant]
     Active Substance: SIMVASTATIN
  2. VITAMIN D [Concomitant]
     Active Substance: VITAMIN D NOS
  3. FLAXSEED [Concomitant]
     Active Substance: FLAX SEED
  4. BIOTIN [Concomitant]
     Active Substance: BIOTIN
  5. ESTRADIOL VAGINAL INSERTS [Suspect]
     Active Substance: ESTRADIOL
     Indication: BLOOD OESTROGEN DECREASED
     Dosage: ?          QUANTITY:1 TABLET(S);OTHER FREQUENCY:TWICE WEEKLY;?
     Route: 067
     Dates: start: 20190212, end: 20190606
  6. VITAMIN E [Concomitant]
     Active Substance: .ALPHA.-TOCOPHEROL
  7. ESTRADIOL VAGINAL INSERTS [Suspect]
     Active Substance: ESTRADIOL
     Indication: VULVOVAGINAL DRYNESS
     Dosage: ?          QUANTITY:1 TABLET(S);OTHER FREQUENCY:TWICE WEEKLY;?
     Route: 067
     Dates: start: 20190212, end: 20190606
  8. ESTRING [Concomitant]
     Active Substance: ESTRADIOL
  9. VITAMIN C [Concomitant]
     Active Substance: ASCORBIC ACID
  10. GLUCOSAMINE [Concomitant]
     Active Substance: GLUCOSAMINE
  11. CHONDROITIN [Concomitant]
     Active Substance: CHONDROITIN

REACTIONS (4)
  - Dysuria [None]
  - Vulvovaginal discomfort [None]
  - Cystocele [None]
  - Vulvovaginal dryness [None]

NARRATIVE: CASE EVENT DATE: 20190730
